FAERS Safety Report 9726246 (Version 1)
Quarter: 2013Q4

REPORT INFORMATION
  Report Type: Spontaneous
  Country: US (occurrence: None)
  Receive Date: 20131202
  Receipt Date: 20131202
  Transmission Date: 20140711
  Serious: Yes (Hospitalization)
  Sender: FDA-Public Use
  Company Number: None

PATIENT
  Age: 84 Year
  Sex: Female
  Weight: 90.7 kg

DRUGS (3)
  1. LETROZOLE [Suspect]
  2. PLAVIX [Suspect]
  3. ASS [Suspect]

REACTIONS (2)
  - Transient ischaemic attack [None]
  - Cerebrovascular accident [None]
